FAERS Safety Report 21003452 (Version 1)
Quarter: 2022Q2

REPORT INFORMATION
  Report Type: Spontaneous
  Country: US (occurrence: US)
  Receive Date: 20220624
  Receipt Date: 20220624
  Transmission Date: 20220720
  Serious: Yes (Hospitalization, Other)
  Sender: FDA-Public Use
  Company Number: US-Accord-267147

PATIENT
  Age: 61 Year
  Sex: Female

DRUGS (8)
  1. CLOZAPINE [Suspect]
     Active Substance: CLOZAPINE
     Indication: Schizophrenia
     Dosage: 12.5 MG DAILY ON DAY 25, 125 MG , THEN REDUCED TO 50 MG TWICE A DAY, INCREASED TO 350 MG DAILY
  2. QUETIAPINE [Concomitant]
     Active Substance: QUETIAPINE
     Indication: Schizophrenia
     Dosage: INITIALLY MONOTHERAPY, TITRATED UP TO 700 MG/DAY
  3. HALOPERIDOL [Concomitant]
     Active Substance: HALOPERIDOL
     Indication: Schizophrenia
     Dosage: UP TO 10 MG/DAY
  4. DIVALPROEX SODIUM [Concomitant]
     Active Substance: DIVALPROEX SODIUM
     Indication: Schizophrenia
     Dosage: EXTENDED RELEASE (UP TO 500 MG/DAY).
  5. DOCUSATE [Concomitant]
     Active Substance: DOCUSATE
     Indication: Prophylaxis
  6. POLYETHYLENE GLYCOL [Concomitant]
     Active Substance: POLYETHYLENE GLYCOL
     Indication: Prophylaxis
  7. LORAZEPAM [Concomitant]
     Active Substance: LORAZEPAM
     Indication: Agitation
  8. MAGNESIUM HYDROXIDE [Concomitant]
     Active Substance: MAGNESIUM HYDROXIDE
     Indication: Prophylaxis

REACTIONS (2)
  - Oesophagitis [Recovered/Resolved]
  - Haematemesis [Recovered/Resolved]
